FAERS Safety Report 13382545 (Version 1)
Quarter: 2017Q1

REPORT INFORMATION
  Report Type: Report from Study
  Country: US (occurrence: US)
  Receive Date: 20170329
  Receipt Date: 20170329
  Transmission Date: 20170429
  Serious: No
  Sender: FDA-Public Use
  Company Number: PHHY2015US070964

PATIENT
  Age: 45 Year
  Sex: Female

DRUGS (1)
  1. GILENYA [Suspect]
     Active Substance: FINGOLIMOD HYDROCHLORIDE
     Indication: MULTIPLE SCLEROSIS
     Dosage: UNK UNK, QD
     Route: 048

REACTIONS (8)
  - Lymphocyte count increased [Unknown]
  - Facial pain [Unknown]
  - Asthenia [Unknown]
  - Neck pain [Unknown]
  - Urinary tract infection [Recovered/Resolved]
  - Pain in extremity [Unknown]
  - Hypoaesthesia [Unknown]
  - Migraine [Unknown]

NARRATIVE: CASE EVENT DATE: 20150223
